FAERS Safety Report 19599013 (Version 1)
Quarter: 2021Q3

REPORT INFORMATION
  Report Type: Spontaneous
  Country: US (occurrence: US)
  Receive Date: 20210722
  Receipt Date: 20210722
  Transmission Date: 20211014
  Serious: No
  Sender: FDA-Public Use
  Company Number: None

PATIENT
  Age: 90 Year
  Sex: Male

DRUGS (1)
  1. PHENYTOIN (GENERIC ?MYLAN) (PHENYTOIN (GENERIC) NA, EXTENDED 100MG CAP [Suspect]
     Active Substance: PHENYTOIN SODIUM, EXTENDED
     Route: 048
     Dates: start: 20210419, end: 20210524

REACTIONS (5)
  - Rash [None]
  - Angioedema [None]
  - Hyperkalaemia [None]
  - Hypersensitivity [None]
  - Drug reaction with eosinophilia and systemic symptoms [None]

NARRATIVE: CASE EVENT DATE: 20210524
